FAERS Safety Report 8514629-2 (Version None)
Quarter: 2012Q3

REPORT INFORMATION
  Report Type: 
  Country: None (occurrence: None)
  Receive Date: 20120717
  Receipt Date: 20120706
  Transmission Date: 20120928
  Serious: Yes (Hospitalization)
  Sender: FDA-Public Use
  Company Number: JP-VERTEX PHARMACEUTICALS INC.-AE-2012-002815

PATIENT
  Age: 40 Year
  Sex: Male

DRUGS (74)
  1. MUCOSTA [Concomitant]
     Route: 048
     Dates: start: 20120516, end: 20120529
  2. FAMOTIDINE [Concomitant]
     Route: 048
     Dates: start: 20120215, end: 20120430
  3. ZADITEN [Concomitant]
     Route: 045
     Dates: start: 20120418, end: 20120423
  4. AZUNOL GARGLE LIQUID [Concomitant]
     Route: 049
     Dates: start: 20120321, end: 20120327
  5. AMOXICILLIN [Concomitant]
     Route: 048
     Dates: start: 20120328, end: 20120401
  6. MEIACT [Concomitant]
     Route: 048
     Dates: start: 20120417, end: 20120419
  7. MUCOSTA [Concomitant]
     Route: 048
     Dates: start: 20120502, end: 20120510
  8. ACETAMINOPHEN [Concomitant]
     Route: 048
     Dates: start: 20120229, end: 20120313
  9. ACETAMINOPHEN [Concomitant]
     Route: 048
     Dates: start: 20120328, end: 20120424
  10. ACETAMINOPHEN [Concomitant]
     Route: 048
     Dates: start: 20120427, end: 20120501
  11. ACETAMINOPHEN [Concomitant]
     Route: 048
     Dates: start: 20120606, end: 20120619
  12. ISODINE GARGLE [Concomitant]
     Route: 049
     Dates: start: 20120307, end: 20120313
  13. BIO-THREE [Concomitant]
     Route: 048
     Dates: start: 20120502, end: 20120612
  14. MAGLAX [Concomitant]
     Route: 048
     Dates: start: 20120404, end: 20120430
  15. MUCOSTA [Concomitant]
     Route: 048
     Dates: start: 20111231
  16. MUCOSTA [Concomitant]
     Route: 048
     Dates: start: 20120511, end: 20120515
  17. MICONAZOLE [Concomitant]
     Route: 049
     Dates: start: 20120210, end: 20120306
  18. ZADITEN [Concomitant]
     Route: 045
     Dates: start: 20120307, end: 20120313
  19. ZADITEN [Concomitant]
     Route: 047
     Dates: start: 20120321, end: 20120327
  20. ZADITEN [Concomitant]
     Route: 047
     Dates: start: 20120417, end: 20120423
  21. AMOXICILLIN [Concomitant]
     Route: 048
     Dates: start: 20120411, end: 20120413
  22. MEIACT [Concomitant]
     Route: 048
     Dates: start: 20120404, end: 20120406
  23. MUCOSTA [Concomitant]
     Route: 048
     Dates: start: 20120215, end: 20120228
  24. MUCOSTA [Concomitant]
     Route: 048
     Dates: start: 20120314, end: 20120327
  25. ACETAMINOPHEN [Concomitant]
     Route: 048
     Dates: start: 20120210, end: 20120214
  26. ACETAMINOPHEN [Concomitant]
     Route: 048
     Dates: start: 20120425, end: 20120426
  27. ACETAMINOPHEN [Concomitant]
     Route: 048
     Dates: start: 20120516, end: 20120522
  28. ISODINE GARGLE [Concomitant]
     Route: 049
     Dates: start: 20120321, end: 20120327
  29. ZOLPIDEM [Concomitant]
     Route: 048
     Dates: start: 20120210, end: 20120221
  30. GASMOTIN [Concomitant]
     Route: 048
     Dates: start: 20120502, end: 20120612
  31. BIO-THREE [Concomitant]
     Route: 048
     Dates: start: 20120227, end: 20120228
  32. ZADITEN [Concomitant]
     Route: 045
     Dates: start: 20120411, end: 20120417
  33. ZADITEN [Concomitant]
     Route: 047
     Dates: start: 20120404, end: 20120410
  34. REBETOL [Concomitant]
     Route: 048
     Dates: start: 20120125, end: 20120612
  35. MUCOSTA [Concomitant]
     Route: 048
     Dates: start: 20120210, end: 20120214
  36. ACETAMINOPHEN [Concomitant]
     Route: 048
     Dates: start: 20120215, end: 20120228
  37. CLOBETASOL PROPIONATE [Concomitant]
     Route: 061
     Dates: start: 20120222, end: 20120228
  38. GASMOTIN [Concomitant]
     Route: 048
     Dates: start: 20120215, end: 20120430
  39. BIO-THREE [Concomitant]
     Route: 048
     Dates: start: 20120229, end: 20120229
  40. MUCOSTA [Concomitant]
     Route: 048
     Dates: start: 20120530, end: 20120605
  41. MUCOSTA [Concomitant]
     Route: 048
     Dates: start: 20120606, end: 20120619
  42. ACETAMINOPHEN [Concomitant]
     Route: 048
     Dates: start: 20120523, end: 20120529
  43. KENALOG [Concomitant]
     Route: 049
     Dates: start: 20120210, end: 20120214
  44. ISODINE GARGLE [Concomitant]
     Route: 049
     Dates: start: 20120516, end: 20120522
  45. CLOBETASOL PROPIONATE [Concomitant]
     Route: 061
     Dates: start: 20120210, end: 20120214
  46. FAMOTIDINE [Concomitant]
     Route: 048
     Dates: start: 20120502, end: 20120612
  47. ZADITEN [Concomitant]
     Route: 045
     Dates: start: 20120404, end: 20120410
  48. ZADITEN [Concomitant]
     Route: 047
     Dates: start: 20120321
  49. LIDOMEX [Concomitant]
     Route: 061
     Dates: start: 20120418, end: 20120424
  50. TELAVIC (TELAPREVIR) [Suspect]
     Route: 048
     Dates: start: 20120130, end: 20120321
  51. PEG-INTRON [Concomitant]
     Indication: HEPATITIS C
     Route: 058
     Dates: start: 20111228, end: 20120605
  52. LOXONIN [Concomitant]
     Route: 048
     Dates: start: 20111228, end: 20111228
  53. MUCOSTA [Concomitant]
     Route: 048
     Dates: start: 20120328, end: 20120424
  54. MUCOSTA [Concomitant]
     Route: 048
     Dates: start: 20120425, end: 20120426
  55. MUCOSTA [Concomitant]
     Route: 048
     Dates: start: 20120427, end: 20120501
  56. ACETAMINOPHEN [Concomitant]
     Route: 048
     Dates: start: 20120502, end: 20120510
  57. ACETAMINOPHEN [Concomitant]
     Route: 048
     Dates: start: 20120530, end: 20120605
  58. ISODINE GARGLE [Concomitant]
     Route: 049
     Dates: start: 20120210, end: 20120228
  59. MICONAZOLE [Concomitant]
     Route: 049
     Dates: start: 20120328, end: 20120403
  60. BIO-THREE [Concomitant]
     Route: 048
     Dates: start: 20120301, end: 20120403
  61. ZADITEN [Concomitant]
     Route: 045
     Dates: start: 20120229
  62. ZADITEN [Concomitant]
     Route: 045
     Dates: start: 20120321, end: 20120327
  63. AZUNOL GARGLE LIQUID [Concomitant]
     Route: 049
     Dates: start: 20120404, end: 20120410
  64. MAGLAX [Concomitant]
     Route: 048
     Dates: start: 20120502, end: 20120515
  65. TELAVIC (TELAPREVIR) [Suspect]
     Indication: HEPATITIS C
     Route: 048
     Dates: start: 20111228, end: 20120129
  66. REBETOL [Concomitant]
     Indication: HEPATITIS C
     Route: 048
     Dates: start: 20111228, end: 20120124
  67. MUCOSTA [Concomitant]
     Route: 048
     Dates: start: 20120229, end: 20120313
  68. ACETAMINOPHEN [Concomitant]
     Route: 048
     Dates: start: 20120314, end: 20120327
  69. ACETAMINOPHEN [Concomitant]
     Route: 048
     Dates: start: 20120511, end: 20120515
  70. ISODINE GARGLE [Concomitant]
     Route: 049
     Dates: start: 20120613, end: 20120619
  71. ZADITEN [Concomitant]
     Route: 045
     Dates: start: 20120229, end: 20120307
  72. ZADITEN [Concomitant]
     Route: 047
     Dates: start: 20120229, end: 20120306
  73. SANCOBA [Concomitant]
     Route: 047
     Dates: start: 20120229, end: 20120306
  74. AZUNOL GARGLE LIQUID [Concomitant]
     Route: 049
     Dates: start: 20120516, end: 20120522

REACTIONS (7)
  - PYREXIA [None]
  - ECZEMA [None]
  - DECREASED APPETITE [None]
  - NAUSEA [None]
  - SEBORRHOEIC DERMATITIS [None]
  - DIARRHOEA [None]
  - STOMATITIS [None]
